FAERS Safety Report 6203952-2 (Version None)
Quarter: 2009Q2

REPORT INFORMATION
  Report Type: 
  Country: None (occurrence: None)
  Receive Date: 20090527
  Receipt Date: 20090525
  Transmission Date: 20091009
  Serious: Yes (Death)
  Sender: FDA-Public Use
  Company Number: B0543883A

PATIENT
  Sex: Male

DRUGS (7)
  1. TRIZIVIR [Suspect]
     Indication: HIV INFECTION
     Route: 048
     Dates: start: 20040203
  2. VIRAMUNE [Suspect]
     Indication: HIV INFECTION
     Route: 048
     Dates: start: 20040106, end: 20060926
  3. EPIVIR [Concomitant]
     Indication: HIV INFECTION
     Dates: start: 19960808, end: 20000810
  4. HIVID [Concomitant]
     Indication: HIV INFECTION
     Route: 065
     Dates: start: 19960808, end: 19970417
  5. RETROVIR [Concomitant]
     Indication: HIV INFECTION
     Route: 065
     Dates: start: 19960808, end: 20000810
  6. INVIRASE [Concomitant]
     Indication: HIV INFECTION
     Route: 065
     Dates: start: 19970417, end: 20000810
  7. COMBIVIR [Concomitant]
     Indication: HIV INFECTION
     Route: 065
     Dates: start: 20040106, end: 20040203

REACTIONS (2)
  - MYOCARDIAL INFARCTION [None]
  - THROMBOANGIITIS OBLITERANS [None]
